FAERS Safety Report 9785649 (Version 4)
Quarter: 2014Q3

REPORT INFORMATION
  Report Type: Spontaneous
  Country: US (occurrence: US)
  Receive Date: 20131227
  Receipt Date: 20140821
  Transmission Date: 20150326
  Serious: No
  Sender: FDA-Public Use
  Company Number: US-009507513-1312USA011296

PATIENT
  Sex: Female

DRUGS (1)
  1. NUVARING [Suspect]
     Active Substance: ETHINYL ESTRADIOL\ETONOGESTREL
     Indication: CONTRACEPTION
     Dosage: UNK
     Route: 067
     Dates: start: 20080804, end: 20111219

REACTIONS (4)
  - Deep vein thrombosis [Unknown]
  - Peripheral venous disease [Unknown]
  - Muscle rupture [Unknown]
  - Varicose vein ruptured [Unknown]

NARRATIVE: CASE EVENT DATE: 20111214
